FAERS Safety Report 10209852 (Version 2)
Quarter: 2014Q2

REPORT INFORMATION
  Report Type: Spontaneous
  Country: CA (occurrence: CA)
  Receive Date: 20140602
  Receipt Date: 20140602
  Transmission Date: 20141212
  Serious: Yes (Other)
  Sender: FDA-Public Use
  Company Number: CA-AMGEN-CANSP2014034223

PATIENT
  Age: 53 Year
  Sex: Female
  Weight: 50 kg

DRUGS (6)
  1. PROLIA [Suspect]
     Indication: OSTEOPOROSIS POSTMENOPAUSAL
     Dosage: 60 MG, Q6MO
     Route: 058
     Dates: start: 20140108
  2. VITAMIN D                          /00107901/ [Concomitant]
     Dosage: UNK
     Route: 065
  3. MULTIVITAMIN                       /00097801/ [Concomitant]
     Dosage: UNK
  4. FISH OIL [Concomitant]
     Dosage: UNK
  5. CALCIUM [Concomitant]
  6. MAGNESIUM [Concomitant]

REACTIONS (3)
  - Sjogren^s syndrome [Unknown]
  - Seasonal allergy [Unknown]
  - Dry eye [Not Recovered/Not Resolved]
